FAERS Safety Report 25931760 (Version 1)
Quarter: 2025Q4

REPORT INFORMATION
  Report Type: Spontaneous
  Country: EU (occurrence: EU)
  Receive Date: 20251016
  Receipt Date: 20251016
  Transmission Date: 20260117
  Serious: Yes (Other)
  Sender: GUERBET
  Company Number: None

PATIENT
  Age: 74 Year
  Sex: Female
  Weight: 67 kg

DRUGS (1)
  1. DOTAREM [Suspect]
     Active Substance: GADOTERATE MEGLUMINE
     Indication: Product used for unknown indication
     Route: 065
     Dates: start: 20250911, end: 20250911

REACTIONS (2)
  - Blood pressure increased [Recovered/Resolved]
  - Skin reaction [Recovered/Resolved]

NARRATIVE: CASE EVENT DATE: 20250911
